FAERS Safety Report 15259315 (Version 2)
Quarter: 2018Q3

REPORT INFORMATION
  Report Type: Spontaneous
  Country: CH (occurrence: CH)
  Receive Date: 20180809
  Receipt Date: 20180822
  Transmission Date: 20181010
  Serious: Yes (Other)
  Sender: FDA-Public Use
  Company Number: CH-ROCHE-2165430

PATIENT
  Age: 48 Year
  Sex: Female

DRUGS (13)
  1. OPTIFEN [Concomitant]
     Active Substance: IBUPROFEN
  2. AMLODIPIN [Concomitant]
     Active Substance: AMLODIPINE BESYLATE
     Route: 048
  3. ESCITALOPRAM [Concomitant]
     Active Substance: ESCITALOPRAM OXALATE
     Route: 065
  4. COLCHICINE OPOCALCIUM [Concomitant]
     Active Substance: COLCHICINE
  5. NAPROXEN. [Concomitant]
     Active Substance: NAPROXEN
     Route: 065
  6. MABTHERA [Suspect]
     Active Substance: RITUXIMAB
     Indication: SYSTEMIC LUPUS ERYTHEMATOSUS
     Route: 065
     Dates: start: 20161227
  7. ARCOXIA [Concomitant]
     Active Substance: ETORICOXIB
  8. MABTHERA [Suspect]
     Active Substance: RITUXIMAB
     Indication: TEMPORAL ARTERITIS
  9. ASPIRIN CARDIO [Concomitant]
     Active Substance: ASPIRIN
     Route: 048
  10. VIMOVO [Concomitant]
     Active Substance: ESOMEPRAZOLE MAGNESIUM\NAPROXEN
  11. SPIRICORT [Concomitant]
     Active Substance: PREDNISOLONE
     Indication: SYSTEMIC LUPUS ERYTHEMATOSUS
     Route: 065
  12. SPIRICORT [Concomitant]
     Active Substance: PREDNISOLONE
     Indication: TEMPORAL ARTERITIS
  13. PANTOZOL (SWITZERLAND) [Concomitant]
     Active Substance: PANTOPRAZOLE SODIUM
     Route: 048

REACTIONS (3)
  - Hypogammaglobulinaemia [Not Recovered/Not Resolved]
  - Iron deficiency [Unknown]
  - Pericarditis [Unknown]

NARRATIVE: CASE EVENT DATE: 201801
